FAERS Safety Report 6816841-7 (Version None)
Quarter: 2010Q3

REPORT INFORMATION
  Report Type: 
  Country: None (occurrence: None)
  Receive Date: 20100706
  Receipt Date: 20100624
  Transmission Date: 20110219
  Serious: Yes (Hospitalization)
  Sender: FDA-Public Use
  Company Number: US-JNJFOC-20100607700

PATIENT
  Age: 14 Year
  Sex: Male
  Weight: 70.31 kg

DRUGS (8)
  1. CONCERTA [Suspect]
     Indication: ATTENTION DEFICIT/HYPERACTIVITY DISORDER
     Route: 048
  2. CONCERTA [Suspect]
     Route: 048
  3. CONCERTA [Suspect]
     Route: 048
  4. ZANTAC [Concomitant]
     Indication: GASTROOESOPHAGEAL REFLUX DISEASE
     Route: 048
  5. PREVACID [Concomitant]
     Indication: GASTROOESOPHAGEAL REFLUX DISEASE
     Route: 048
  6. SINGULAIR [Concomitant]
     Indication: ASTHMA
     Route: 065
  7. TRILEPTAL [Concomitant]
     Indication: CONVULSION
     Route: 048
  8. SEROQUEL [Concomitant]
     Indication: PRODUCT USED FOR UNKNOWN INDICATION
     Route: 048

REACTIONS (16)
  - AGGRESSION [None]
  - ANXIETY [None]
  - COMPLEX PARTIAL SEIZURES [None]
  - CONDUCT DISORDER [None]
  - DELUSION [None]
  - DISTURBANCE IN SOCIAL BEHAVIOUR [None]
  - DRUG INEFFECTIVE [None]
  - GASTROOESOPHAGEAL REFLUX DISEASE [None]
  - HEADACHE [None]
  - IRRITABILITY [None]
  - MALAISE [None]
  - OVERDOSE [None]
  - PARANASAL SINUS HAEMATOMA [None]
  - SELF-INJURIOUS IDEATION [None]
  - SINUSITIS [None]
  - SOMNOLENCE [None]
